FAERS Safety Report 19926735 (Version 2)
Quarter: 2022Q1

REPORT INFORMATION
  Report Type: Spontaneous
  Country: CA (occurrence: CA)
  Receive Date: 20211007
  Receipt Date: 20220111
  Transmission Date: 20220423
  Serious: Yes (Hospitalization, Other)
  Sender: FDA-Public Use
  Company Number: CA-SA-SAC20211004000866

PATIENT
  Age: 49 Year
  Sex: Female
  Weight: 58 kg

DRUGS (19)
  1. FABRAZYME [Suspect]
     Active Substance: AGALSIDASE BETA
     Indication: Product used for unknown indication
  2. REPLAGAL [Suspect]
     Active Substance: AGALSIDASE ALFA
     Indication: Fabry^s disease
     Dosage: 10.5 MG, QOW (1 EVERY 2 WEEKS)
     Route: 065
  3. REPLAGAL [Suspect]
     Active Substance: AGALSIDASE ALFA
     Dosage: UNK UNK, QOW (1 EVERY 2 WEEKS)
     Route: 065
  4. REPLAGAL [Suspect]
     Active Substance: AGALSIDASE ALFA
     Dosage: 3 DF, QOW  (1 EVERY 2 WEEKS)
     Route: 065
     Dates: start: 20201008
  5. REPLAGAL [Suspect]
     Active Substance: AGALSIDASE ALFA
     Dosage: 3 DF, QOW  (1 EVERY 2 WEEKS)
     Route: 065
  6. REPLAGAL [Suspect]
     Active Substance: AGALSIDASE ALFA
     Dosage: 14 MG, QOW  (1 EVERY 2 WEEKS)
     Route: 065
  7. REPLAGAL [Suspect]
     Active Substance: AGALSIDASE ALFA
     Dosage: 10.5 MG, QOW  (1 EVERY 2 WEEKS)
     Route: 065
  8. ASPIRIN [Concomitant]
     Active Substance: ASPIRIN
     Indication: Cardiac disorder
     Dosage: 81 MG, QD
     Route: 048
  9. COLCHICINE [Concomitant]
     Active Substance: COLCHICINE
     Dosage: 6 MG, BID
     Route: 048
     Dates: start: 20210315
  10. HALOPERIDOL [Concomitant]
     Active Substance: HALOPERIDOL
     Indication: Nausea
     Dosage: 2 MG, Q4H
     Route: 048
  11. HALOPERIDOL [Concomitant]
     Active Substance: HALOPERIDOL
     Dosage: 0.5 MG, Q4H
     Route: 048
  12. HYDROMORPHONE [Concomitant]
     Active Substance: HYDROMORPHONE
     Indication: Abdominal pain
     Dosage: 2 MG, Q4H
     Route: 048
  13. METOPROLOL [Concomitant]
     Active Substance: METOPROLOL
     Indication: Cardiac disorder
     Dosage: 50 MG, BID
     Route: 048
  14. ROSUVASTATIN [Concomitant]
     Active Substance: ROSUVASTATIN
     Indication: Blood cholesterol
     Dosage: 5 MG, QD
     Route: 048
  15. ROSUVASTATIN CALCIUM [Concomitant]
     Active Substance: ROSUVASTATIN CALCIUM
     Indication: Cholesterosis
     Dosage: 50 MG, QD
     Route: 048
  16. TOPIRAMATE [Concomitant]
     Active Substance: TOPIRAMATE
     Indication: Headache
     Dosage: 50 MG, QD
     Route: 048
  17. TRAZODONE [Concomitant]
     Active Substance: TRAZODONE HYDROCHLORIDE
     Indication: Sleep disorder
     Dosage: 50 MG, QD
     Route: 048
  18. CANNABIS SATIVA FLOWERING TOP [Concomitant]
     Active Substance: CANNABIS SATIVA FLOWERING TOP
     Indication: Product used for unknown indication
  19. ZOPICLONE [Concomitant]
     Active Substance: ZOPICLONE
     Indication: Sleep disorder
     Dosage: 7.5 MG
     Route: 065

REACTIONS (14)
  - Arthritis [Unknown]
  - Clostridium difficile infection [Unknown]
  - Condition aggravated [Unknown]
  - Nosocomial infection [Recovered/Resolved]
  - Poor venous access [Recovered/Resolved]
  - Toothache [Not Recovered/Not Resolved]
  - Weight decreased [Unknown]
  - Weight increased [Unknown]
  - Skin burning sensation [Unknown]
  - Pruritus [Not Recovered/Not Resolved]
  - Headache [Recovered/Resolved]
  - Infusion site pruritus [Not Recovered/Not Resolved]
  - Therapy interrupted [Unknown]
  - Therapy change [Unknown]

NARRATIVE: CASE EVENT DATE: 20201027
